FAERS Safety Report 7780709-2 (Version None)
Quarter: 2011Q3

REPORT INFORMATION
  Report Type: 
  Country: None (occurrence: None)
  Receive Date: 20110927
  Receipt Date: 20110502
  Transmission Date: 20111222
  Serious: No
  Sender: FDA-Public Use
  Company Number: US-BRISTOL-MYERS SQUIBB COMPANY-15673510

PATIENT
  Age: 75 Year
  Sex: Female
  Weight: 59 kg

DRUGS (4)
  1. CALCIUM CARBONATE [Concomitant]
  2. AVAPRO [Suspect]
     Indication: HYPERTENSION
  3. SYNTHROID [Concomitant]
  4. NORMODYNE [Concomitant]

REACTIONS (3)
  - EYELID PTOSIS [None]
  - OEDEMA PERIPHERAL [None]
  - PUPILLARY DISORDER [None]
